FAERS Safety Report 9726326 (Version 3)
Quarter: 2014Q3

REPORT INFORMATION
  Report Type: Spontaneous
  Country: US (occurrence: US)
  Receive Date: 20131203
  Receipt Date: 20140717
  Transmission Date: 20150326
  Serious: Yes (Life-Threatening, Hospitalization)
  Sender: FDA-Public Use
  Company Number: US-BAYER-2013-145129

PATIENT
  Age: 28 Year
  Sex: Female
  Weight: 54.42 kg

DRUGS (1)
  1. MIRENA [Suspect]
     Active Substance: LEVONORGESTREL
     Indication: CONTRACEPTION
     Dosage: 20 MCG/24HR, CONT
     Route: 015
     Dates: start: 20101029, end: 20120131

REACTIONS (10)
  - Injury [None]
  - Abdominal pain [None]
  - Emotional distress [None]
  - Device dislocation [None]
  - Device difficult to use [None]
  - Anhedonia [None]
  - General physical health deterioration [None]
  - Uterine perforation [None]
  - Anxiety [None]
  - Infection [None]

NARRATIVE: CASE EVENT DATE: 201201
